FAERS Safety Report 10211191 (Version 1)
Quarter: 2014Q2

REPORT INFORMATION
  Report Type: Spontaneous
  Country: US (occurrence: US)
  Receive Date: 20140602
  Receipt Date: 20140602
  Transmission Date: 20141212
  Serious: No
  Sender: FDA-Public Use
  Company Number: US-ABBVIE-13P-163-1179788-00

PATIENT
  Sex: Female

DRUGS (1)
  1. MARINOL [Suspect]
     Indication: OCCUPATIONAL EXPOSURE TO PRODUCT

REACTIONS (2)
  - Occupational exposure to product [Not Recovered/Not Resolved]
  - Drug screen positive [Unknown]
